FAERS Safety Report 24645903 (Version 6)
Quarter: 2024Q4

REPORT INFORMATION
  Report Type: Spontaneous
  Country: US (occurrence: US)
  Receive Date: 20241121
  Receipt Date: 20241211
  Transmission Date: 20250115
  Serious: Yes (Hospitalization)
  Sender: ROCHE
  Company Number: US-ROCHE-10000129201

PATIENT
  Age: 85 Year
  Sex: Female
  Weight: 56.7 kg

DRUGS (11)
  1. ACTEMRA ACTPEN [Suspect]
     Active Substance: TOCILIZUMAB
     Indication: Giant cell arteritis
     Route: 058
     Dates: start: 2021, end: 2023
  2. ACTEMRA ACTPEN [Suspect]
     Active Substance: TOCILIZUMAB
     Route: 058
     Dates: start: 20240929
  3. PREDNISONE [Concomitant]
     Active Substance: PREDNISONE
  4. ATENOLOL [Concomitant]
     Active Substance: ATENOLOL
  5. CANDESARTAN [Concomitant]
     Active Substance: CANDESARTAN
  6. SPIRONOLACTONE [Concomitant]
     Active Substance: SPIRONOLACTONE
  7. EZETIMIBE [Concomitant]
     Active Substance: EZETIMIBE
  8. ATORVASTATIN [Concomitant]
     Active Substance: ATORVASTATIN
  9. VITAMINS [Concomitant]
     Active Substance: VITAMINS
  10. OMEPRAZOLE [Concomitant]
     Active Substance: OMEPRAZOLE
  11. BIOTIN [Concomitant]
     Active Substance: BIOTIN

REACTIONS (7)
  - Internal haemorrhage [Unknown]
  - Macular degeneration [Not Recovered/Not Resolved]
  - Ulcer [Unknown]
  - Product dose omission issue [Unknown]
  - Needle issue [Unknown]
  - Accidental exposure to product [Unknown]
  - Product complaint [Unknown]

NARRATIVE: CASE EVENT DATE: 20230901
